FAERS Safety Report 6135940-9 (Version None)
Quarter: 2009Q1

REPORT INFORMATION
  Report Type: 
  Country: None (occurrence: None)
  Receive Date: 20090329
  Receipt Date: 20080610
  Transmission Date: 20090719
  Serious: No
  Sender: FDA-Public Use
  Company Number: US-BAUSCH-2008BL002562

PATIENT
  Age: 34 Year
  Sex: Female

DRUGS (1)
  1. ALREX [Suspect]
     Indication: GIANT PAPILLARY CONJUNCTIVITIS
     Route: 047
     Dates: start: 20080604, end: 20080608

REACTIONS (1)
  - RASH [None]
